FAERS Safety Report 11658981 (Version 1)
Quarter: 2015Q4

REPORT INFORMATION
  Report Type: Spontaneous
  Country: US (occurrence: None)
  Receive Date: 20151023
  Receipt Date: 20151023
  Transmission Date: 20160304
  Serious: Yes (Other)
  Sender: FDA-Public Use
  Company Number: None

PATIENT
  Age: 64 Year
  Sex: Male
  Weight: 91.63 kg

DRUGS (4)
  1. AMLODIPINE [Concomitant]
     Active Substance: AMLODIPINE BESYLATE
  2. OPTI-MEN VITAMINS [Concomitant]
  3. TELMISARTAN 20 MG WATSON [Suspect]
     Active Substance: TELMISARTAN
     Indication: HYPERTENSION
     Route: 048
     Dates: start: 20151020, end: 20151022
  4. MOTRIN [Concomitant]
     Active Substance: IBUPROFEN

REACTIONS (5)
  - Documented hypersensitivity to administered product [None]
  - Swollen tongue [None]
  - Lip swelling [None]
  - Pharyngeal oedema [None]
  - Peripheral swelling [None]

NARRATIVE: CASE EVENT DATE: 20151022
